FAERS Safety Report 9314473 (Version 1)
Quarter: 2013Q2

REPORT INFORMATION
  Report Type: Spontaneous
  Country: US (occurrence: US)
  Receive Date: 20130529
  Receipt Date: 20130529
  Transmission Date: 20140414
  Serious: No
  Sender: FDA-Public Use
  Company Number: US-PFIZER INC-2013159480

PATIENT
  Sex: Female

DRUGS (1)
  1. VENLAFAXINE HCL [Suspect]
     Dosage: UNK

REACTIONS (4)
  - Drug withdrawal syndrome [Unknown]
  - Activities of daily living impaired [Unknown]
  - Vertigo [Unknown]
  - Abnormal dreams [Unknown]
